FAERS Safety Report 4714060-1 (Version None)
Quarter: 2005Q3

REPORT INFORMATION
  Report Type: 
  Country: None (occurrence: None)
  Receive Date: 20050712
  Receipt Date: 20050622
  Transmission Date: 20060218
  Serious: Yes (Death, Other)
  Sender: FDA-Public Use
  Company Number: JP_050606767

PATIENT
  Age: 51 Year
  Weight: 64 kg

DRUGS (2)
  1. GEMZAR [Suspect]
     Indication: LUNG ADENOCARCINOMA
     Dosage: 1700 MG OTHER
     Dates: start: 20030925, end: 20031107
  2. CARBOPLATIN [Concomitant]

REACTIONS (13)
  - BLOOD PRESSURE DECREASED [None]
  - CANDIDA PNEUMONIA [None]
  - DISSEMINATED INTRAVASCULAR COAGULATION [None]
  - ENTEROCOCCAL INFECTION [None]
  - LEGIONELLA SEROLOGY POSITIVE [None]
  - PANCREATIC NECROSIS [None]
  - PLEURAL EFFUSION [None]
  - PNEUMONIA [None]
  - PNEUMONITIS [None]
  - PULMONARY ALVEOLAR HAEMORRHAGE [None]
  - RASH [None]
  - THROMBOSIS [None]
  - WHITE BLOOD CELL COUNT DECREASED [None]
